FAERS Safety Report 15526572 (Version 2)
Quarter: 2018Q4

REPORT INFORMATION
  Report Type: Spontaneous
  Country: US (occurrence: US)
  Receive Date: 20181018
  Receipt Date: 20181220
  Transmission Date: 20190205
  Serious: Yes (Hospitalization, Other)
  Sender: FDA-Public Use
  Company Number: US-DSJP-DSU-2017-149576

PATIENT

DRUGS (2)
  1. BENICAR HCT [Suspect]
     Active Substance: HYDROCHLOROTHIAZIDE\OLMESARTAN MEDOXOMIL
     Dosage: 20/25 MG, QD
  2. BENICAR HCT [Suspect]
     Active Substance: HYDROCHLOROTHIAZIDE\OLMESARTAN MEDOXOMIL
     Indication: PRODUCT USED FOR UNKNOWN INDICATION
     Dosage: 20/12.5MG, QD
     Route: 048
     Dates: start: 20050317, end: 20131227

REACTIONS (8)
  - Gastrooesophageal reflux disease [Unknown]
  - Diverticulum intestinal [Unknown]
  - Coeliac disease [Recovering/Resolving]
  - Large intestine polyp [Recovered/Resolved]
  - Appendicitis [Recovered/Resolved]
  - Sprue-like enteropathy [Recovering/Resolving]
  - Acute kidney injury [Recovered/Resolved]
  - Constipation [Unknown]

NARRATIVE: CASE EVENT DATE: 2007
